FAERS Safety Report 10932049 (Version 1)
Quarter: 2015Q1

REPORT INFORMATION
  Report Type: Report from Study
  Country: NL (occurrence: NL)
  Receive Date: 20150319
  Receipt Date: 20150319
  Transmission Date: 20150721
  Serious: Yes (Death)
  Sender: FDA-Public Use
  Company Number: NL-AMGEN-NLDSL2015025098

PATIENT
  Age: 83 Year
  Sex: Female

DRUGS (4)
  1. ARANESP [Suspect]
     Active Substance: DARBEPOETIN ALFA
     Indication: PRODUCT USED FOR UNKNOWN INDICATION
     Dosage: 60 MCG/0,3ML, PER 2 WEEKS
     Route: 058
     Dates: start: 20150105
  2. ARANESP [Suspect]
     Active Substance: DARBEPOETIN ALFA
     Dosage: 60 MCG/0,3ML, PER 2 WEEKS
     Route: 065
     Dates: start: 20150202
  3. NEULASTA [Suspect]
     Active Substance: PEGFILGRASTIM
     Indication: PRODUCT USED FOR UNKNOWN INDICATION
     Dosage: 6MG/0,6ML WWSP, 1 TIME PER 2 WEEKS
     Route: 058
     Dates: start: 20141204
  4. ARANESP [Suspect]
     Active Substance: DARBEPOETIN ALFA
     Dosage: 60 MCG/0,3ML, PER 2 WEEKS
     Route: 065
     Dates: start: 20150119

REACTIONS (1)
  - Death [Fatal]

NARRATIVE: CASE EVENT DATE: 20150306
